FAERS Safety Report 5227001-8 (Version None)
Quarter: 2007Q1

REPORT INFORMATION
  Report Type: 
  Country: None (occurrence: None)
  Receive Date: 20070201
  Receipt Date: 20070201
  Transmission Date: 20070707
  Serious: Yes (Death)
  Sender: FDA-Public Use
  Company Number: None

PATIENT
  Sex: Male
  Weight: 98.8842 kg

DRUGS (3)
  1. CELEXA [Suspect]
     Indication: ANXIETY
     Dosage: 20 MG
     Dates: start: 20060720, end: 20060813
  2. CELEXA [Suspect]
     Indication: STRESS
     Dosage: 20 MG
     Dates: start: 20060720, end: 20060813
  3. ALCOHOL [Concomitant]

REACTIONS (4)
  - COMPLETED SUICIDE [None]
  - DRUG SCREEN POSITIVE [None]
  - GUN SHOT WOUND [None]
  - HEAD INJURY [None]
